FAERS Safety Report 10556455 (Version 1)
Quarter: 2014Q4

REPORT INFORMATION
  Report Type: Spontaneous
  Country: BR (occurrence: BR)
  Receive Date: 20141031
  Receipt Date: 20141031
  Transmission Date: 20150529
  Serious: Yes (Other)
  Sender: FDA-Public Use
  Company Number: BR-ACCORD-026628

PATIENT
  Age: 49 Year
  Sex: Female
  Weight: 78 kg

DRUGS (5)
  1. PACLITAXEL/PACLITAXEL LIPOSOME [Suspect]
     Active Substance: PACLITAXEL
     Indication: BREAST CANCER
     Route: 042
     Dates: start: 20141003, end: 20141003
  2. RANITIDINE [Concomitant]
     Active Substance: RANITIDINE\RANITIDINE HYDROCHLORIDE
     Indication: PROPHYLAXIS
     Dosage: DAILY DOSE: 50 MG/2 ML
     Route: 042
     Dates: start: 20141003, end: 20141003
  3. DEXAMETHASONE. [Concomitant]
     Active Substance: DEXAMETHASONE
     Indication: PROPHYLAXIS
     Dosage: SF 100 ML + DEXAMETASONE
     Route: 042
     Dates: start: 20141003, end: 20141003
  4. DIFENIDRIN [Concomitant]
     Active Substance: DIPHENHYDRAMINE
     Indication: PROPHYLAXIS
     Dosage: DOSE: 50 MG/ML DAILY
     Route: 042
     Dates: start: 20141003, end: 20141003
  5. NAUSEDRON [Concomitant]
     Active Substance: ONDANSETRON HYDROCHLORIDE
     Indication: PROPHYLAXIS
     Dosage: DOSE: 8 MG/ 4 ML DAILY
     Route: 042
     Dates: start: 20141003, end: 20141003

REACTIONS (7)
  - Infusion related reaction [None]
  - Erythema [None]
  - Hyperaemia [Recovered/Resolved]
  - Asphyxia [None]
  - Respiratory distress [Recovered/Resolved]
  - Hypertension [Recovered/Resolved]
  - Tachycardia [None]

NARRATIVE: CASE EVENT DATE: 20141003
